FAERS Safety Report 4714294-6 (Version None)
Quarter: 2005Q3

REPORT INFORMATION
  Report Type: 
  Country: None (occurrence: None)
  Receive Date: 20050701
  Receipt Date: 20050426
  Transmission Date: 20060218
  Serious: Yes (Other)
  Sender: FDA-Public Use
  Company Number: PHEH2005US02719

PATIENT
  Sex: Male

DRUGS (1)
  1. ENABLEX [Suspect]
     Indication: URINARY INCONTINENCE
     Dosage: 75 MG

REACTIONS (2)
  - BLADDER CATHETERISATION [None]
  - URINARY RETENTION [None]
